FAERS Safety Report 10763199 (Version 1)
Quarter: 2015Q1

REPORT INFORMATION
  Report Type: Spontaneous
  Country: FR (occurrence: FR)
  Receive Date: 20150204
  Receipt Date: 20150204
  Transmission Date: 20150721
  Serious: Yes (Death, Other)
  Sender: FDA-Public Use
  Company Number: FR-PFIZER INC-2015042818

PATIENT
  Sex: Female

DRUGS (16)
  1. CONTRAMAL [Concomitant]
     Active Substance: TRAMADOL HYDROCHLORIDE
     Dosage: 100MG/2ML
  2. DAFALGAN [Concomitant]
     Active Substance: ACETAMINOPHEN
     Dosage: 500 MG
  3. IXPRIM [Concomitant]
     Active Substance: ACETAMINOPHEN\TRAMADOL HYDROCHLORIDE
     Dosage: 37.5 MG
  4. LYRICA [Suspect]
     Active Substance: PREGABALIN
     Dosage: UNK
  5. PARACETAMOL PAN [Concomitant]
     Dosage: 1G/100ML
  6. METOCLOPRAMIDE. [Concomitant]
     Active Substance: METOCLOPRAMIDE
     Dosage: 10MG/2ML
  7. BIPROFENID LP [Concomitant]
     Active Substance: KETOPROFEN
     Dosage: 100 MG
  8. ALPRAZOLAM. [Concomitant]
     Active Substance: ALPRAZOLAM
     Dosage: 0.25 MG
  9. VALIUM [Concomitant]
     Active Substance: DIAZEPAM
     Dosage: 10 MG/ML, UNK
  10. INEXIUM /01479302/ [Concomitant]
     Active Substance: ESOMEPRAZOLE MAGNESIUM
     Dosage: 40 MG
  11. ATARAX [Concomitant]
     Active Substance: HYDROXYZINE\HYDROXYZINE HYDROCHLORIDE
     Dosage: 25 MG
  12. HYDROCORTANCYL [Concomitant]
     Active Substance: PREDNISONE
     Dosage: 2.5 UNK
  13. TIAPRIDAL [Concomitant]
     Active Substance: TIAPRIDE HYDROCHLORIDE
     Dosage: 100MG/2ML
  14. PROFENID [Concomitant]
     Active Substance: KETOPROFEN
     Dosage: 100 MG INJECTION
  15. FRAGMINE [Concomitant]
     Active Substance: DALTEPARIN SODIUM
     Dosage: 5000 IU
  16. SODIUM CHLORIDE. [Concomitant]
     Active Substance: SODIUM CHLORIDE
     Dosage: 0.9 UNK

REACTIONS (2)
  - Cerebral haematoma [Fatal]
  - Vasculitis cerebral [Unknown]
